FAERS Safety Report 22380765 (Version 1)
Quarter: 2023Q2

REPORT INFORMATION
  Report Type: Spontaneous
  Country: FR (occurrence: FR)
  Receive Date: 20230530
  Receipt Date: 20230530
  Transmission Date: 20230722
  Serious: Yes (Other)
  Sender: FDA-Public Use
  Company Number: FR-STRIDES ARCOLAB LIMITED-2023SP007755

PATIENT
  Age: 55 Year
  Sex: Male

DRUGS (4)
  1. METHOTREXATE [Suspect]
     Active Substance: METHOTREXATE
     Indication: Spondyloarthropathy
     Dosage: 15 MILLIGRAM PER WEEK
     Route: 065
  2. PREDNISOLONE [Suspect]
     Active Substance: PREDNISOLONE
     Indication: Spondyloarthropathy
     Dosage: 5 MILLIGRAM PER DAY
     Route: 048
  3. CERTOLIZUMAB [Suspect]
     Active Substance: CERTOLIZUMAB
     Indication: Spondyloarthropathy
     Dosage: 200 MILLIGRAM EVERY 2 WEEKS
     Route: 065
  4. CERTOLIZUMAB [Suspect]
     Active Substance: CERTOLIZUMAB
     Dosage: UNK, (RESUMED)
     Route: 065

REACTIONS (6)
  - Arthritis [Recovered/Resolved]
  - Disease recurrence [Unknown]
  - Leishmaniasis [Recovered/Resolved]
  - Condition aggravated [Unknown]
  - Drug ineffective [Unknown]
  - Off label use [Unknown]
